FAERS Safety Report 6736904-4 (Version None)
Quarter: 2010Q2

REPORT INFORMATION
  Report Type: 
  Country: None (occurrence: None)
  Receive Date: 20100521
  Receipt Date: 20100512
  Transmission Date: 20101027
  Serious: Yes (Hospitalization)
  Sender: FDA-Public Use
  Company Number: GB-ABBOTT-10P-167-0645184-00

PATIENT
  Age: 81 Year
  Sex: Male

DRUGS (2)
  1. CLARITHROMYCIN [Suspect]
     Indication: UPPER RESPIRATORY TRACT INFECTION
     Route: 048
     Dates: start: 20091203, end: 20091204
  2. H1N1 INFLUENZA VACCINE [Suspect]
     Indication: DRUG USE FOR UNKNOWN INDICATION
     Dosage: 3.75 MCG, DAILY
     Route: 030
     Dates: start: 20091202, end: 20091202

REACTIONS (6)
  - COUGH [None]
  - DRUG TOXICITY [None]
  - DYSPNOEA [None]
  - FOLLICULITIS [None]
  - LABYRINTHITIS [None]
  - MALAISE [None]
